FAERS Safety Report 8849578 (Version 1)
Quarter: 2012Q4

REPORT INFORMATION
  Report Type: 
  Country: US (occurrence: US)
  Receive Date: 20121019
  Receipt Date: 20121019
  Transmission Date: 20130627
  Serious: No
  Sender: FDA-Public Use
  Company Number: US-009507513-1210USA005366

PATIENT
  Age: 21 Year
  Sex: Female
  Weight: 71.66 kg

DRUGS (1)
  1. NEXPLANON [Suspect]
     Indication: CONTRACEPTION
     Dosage: 1 DF,every 3 years
     Route: 059
     Dates: start: 20120702

REACTIONS (3)
  - Unintended pregnancy [Unknown]
  - Depression [Unknown]
  - Amenorrhoea [Unknown]
